FAERS Safety Report 25732681 (Version 1)
Quarter: 2025Q3

REPORT INFORMATION
  Report Type: Spontaneous
  Country: EU (occurrence: None)
  Receive Date: 20250827
  Receipt Date: 20250827
  Transmission Date: 20251020
  Serious: Yes (Other)
  Sender: Harrow Health
  Company Number: NVSC2025PL130677

PATIENT
  Age: 30 Year
  Sex: Female

DRUGS (1)
  1. NEVANAC [Suspect]
     Active Substance: NEPAFENAC
     Indication: Acute macular neuroretinopathy

REACTIONS (1)
  - Drug ineffective for unapproved indication [Unknown]
